FAERS Safety Report 14388047 (Version 2)
Quarter: 2018Q4

REPORT INFORMATION
  Report Type: Spontaneous
  Country: US (occurrence: US)
  Receive Date: 20180115
  Receipt Date: 20181106
  Transmission Date: 20190204
  Serious: Yes (Other)
  Sender: FDA-Public Use
  Company Number: US-SA-2017SA207426

PATIENT
  Age: 48 Year
  Sex: Female
  Weight: 68.04 kg

DRUGS (26)
  1. GLIPIZIDE. [Concomitant]
     Active Substance: GLIPIZIDE
  2. SIMVASTATIN. [Concomitant]
     Active Substance: SIMVASTATIN
  3. ADRIAMYCIN [Concomitant]
     Active Substance: DOXORUBICIN HYDROCHLORIDE
     Dosage: UNK UNK,QCY
     Route: 042
  4. LEVEMIR [Concomitant]
     Active Substance: INSULIN DETEMIR
  5. CARVEDILOL. [Concomitant]
     Active Substance: CARVEDILOL
  6. TAXOTERE [Suspect]
     Active Substance: DOCETAXEL
     Dosage: 101 MG, QOW
     Route: 042
     Dates: start: 20101129, end: 20101129
  7. BUPROPION. [Concomitant]
     Active Substance: BUPROPION
  8. LORTAB [HYDROCODONE BITARTRATE;PARACETAMOL;PROMETHAZINE HYDROCHLORIDE] [Concomitant]
  9. AMITRIPTYLINE [Concomitant]
     Active Substance: AMITRIPTYLINE
  10. PROAIR [SALBUTAMOL SULFATE] [Concomitant]
  11. NITROGLYCERIN. [Concomitant]
     Active Substance: NITROGLYCERIN
  12. HUMALOG [Concomitant]
     Active Substance: INSULIN LISPRO
  13. CLOPIDOGREL [Concomitant]
     Active Substance: CLOPIDOGREL BISULFATE
  14. TAXOTERE [Suspect]
     Active Substance: DOCETAXEL
     Indication: BREAST CANCER FEMALE
     Dosage: 101 MG, QOW
     Route: 042
     Dates: start: 20101018, end: 20101018
  15. CYTOXAN [Concomitant]
     Active Substance: CYCLOPHOSPHAMIDE
     Dosage: UNK UNK,QCY
     Route: 042
  16. MORPHINE SULFATE. [Concomitant]
     Active Substance: MORPHINE SULFATE
  17. GABAPENTIN. [Concomitant]
     Active Substance: GABAPENTIN
  18. PERCOCET [OXYCODONE HYDROCHLORIDE;PARACETAMOL] [Concomitant]
  19. NEURONTIN [Concomitant]
     Active Substance: GABAPENTIN
  20. FUROSEMIDE. [Concomitant]
     Active Substance: FUROSEMIDE
  21. DOXYCYCLINE HYDROCHLORIDE [Concomitant]
     Active Substance: DOXYCYCLINE HYDROCHLORIDE
     Dosage: UNK UNK,QCY
     Route: 042
  22. ATORVASTATIN [Concomitant]
     Active Substance: ATORVASTATIN
  23. CYMBALTA [Concomitant]
     Active Substance: DULOXETINE HYDROCHLORIDE
  24. ZOCOR [Concomitant]
     Active Substance: SIMVASTATIN
  25. LISINOPRIL. [Concomitant]
     Active Substance: LISINOPRIL
  26. FLEXERIL [CYCLOBENZAPRINE HYDROCHLORIDE] [Concomitant]

REACTIONS (2)
  - Alopecia [Recovering/Resolving]
  - Psychological trauma [Unknown]

NARRATIVE: CASE EVENT DATE: 201011
